FAERS Safety Report 15612613 (Version 2)
Quarter: 2018Q4

REPORT INFORMATION
  Report Type: Report from Study
  Country: AR (occurrence: AR)
  Receive Date: 20181113
  Receipt Date: 20181128
  Transmission Date: 20190205
  Serious: Yes (Other)
  Sender: FDA-Public Use
  Company Number: PHHY2018AR151910

PATIENT
  Age: 59 Year
  Sex: Female

DRUGS (2)
  1. ZARATOR [Concomitant]
     Active Substance: ATORVASTATIN CALCIUM
     Indication: PRODUCT USED FOR UNKNOWN INDICATION
     Dosage: 10 MG, TIW
     Route: 065
  2. DIOVAN [Suspect]
     Active Substance: VALSARTAN
     Indication: HYPERTENSION
     Dosage: 1 DF (360 UNITS NOT PROVIDED) QD
     Route: 065

REACTIONS (2)
  - Arrhythmia [Recovering/Resolving]
  - Mitral valve incompetence [Unknown]

NARRATIVE: CASE EVENT DATE: 20171205
